FAERS Safety Report 8798136 (Version 3)
Quarter: 2013Q2

REPORT INFORMATION
  Report Type: Report from Study
  Country: JP (occurrence: JP)
  Receive Date: 20120920
  Receipt Date: 20130429
  Transmission Date: 20140414
  Serious: Yes (Other)
  Sender: FDA-Public Use
  Company Number: JP-009507513-1209JPN006359

PATIENT
  Age: 71 Year
  Sex: Male
  Weight: 66 kg

DRUGS (6)
  1. PEGINTRON [Suspect]
     Indication: CHRONIC HEPATITIS C
     Dosage: 100 MICROGRAM, UNK
     Route: 058
     Dates: start: 20120710, end: 20120717
  2. PEGINTRON [Suspect]
     Dosage: 50 MICROGRAM, UNK
     Route: 058
     Dates: start: 20120724
  3. REBETOL [Suspect]
     Indication: CHRONIC HEPATITIS C
     Dosage: 800 MG, QD
     Route: 048
     Dates: start: 20120710, end: 20120721
  4. REBETOL [Suspect]
     Dosage: 800 MG, QD
     Route: 048
     Dates: start: 20120724
  5. TELAVIC [Suspect]
     Indication: CHRONIC HEPATITIS C
     Dosage: 1500 MILLIGRAMS /DAY
     Route: 048
     Dates: start: 20120710, end: 20120721
  6. TELAVIC [Suspect]
     Dosage: 1500 MILLIGRAMS /DAY
     Route: 048
     Dates: start: 20120724, end: 20120807

REACTIONS (2)
  - Blood creatine phosphokinase increased [Recovering/Resolving]
  - Platelet count decreased [Recovering/Resolving]
